FAERS Safety Report 22215721 (Version 2)
Quarter: 2023Q2

REPORT INFORMATION
  Report Type: Spontaneous
  Country: US (occurrence: US)
  Receive Date: 20230416
  Receipt Date: 20230502
  Transmission Date: 20230722
  Serious: No
  Sender: FDA-Public Use
  Company Number: US-ELI_LILLY_AND_COMPANY-US202304001795

PATIENT
  Sex: Female

DRUGS (1)
  1. TRULICITY [Suspect]
     Active Substance: DULAGLUTIDE
     Indication: Glucose tolerance impaired
     Dosage: 0.75 MG, UNKNOWN
     Route: 058
     Dates: start: 2021

REACTIONS (14)
  - Tremor [Unknown]
  - Headache [Unknown]
  - Dizziness [Unknown]
  - Speech disorder [Unknown]
  - Feeling jittery [Unknown]
  - Disturbance in attention [Unknown]
  - Hunger [Unknown]
  - Mood swings [Unknown]
  - Off label use [Unknown]
  - Depression [Unknown]
  - Dry mouth [Unknown]
  - Hyperhidrosis [Unknown]
  - Decreased appetite [Unknown]
  - Fatigue [Unknown]
